FAERS Safety Report 22116617 (Version 1)
Quarter: 2023Q1

REPORT INFORMATION
  Report Type: Report from Study
  Country: CR (occurrence: CR)
  Receive Date: 20230320
  Receipt Date: 20230320
  Transmission Date: 20230417
  Serious: Yes (Other)
  Sender: FDA-Public Use
  Company Number: CR-002147023-NVSC2023CR016429

PATIENT
  Age: 78 Year
  Sex: Female

DRUGS (2)
  1. SECUKINUMAB [Suspect]
     Active Substance: SECUKINUMAB
     Indication: Ankylosing spondylitis
     Dosage: 150 MG, QW
     Route: 058
     Dates: start: 20221229
  2. SECUKINUMAB [Suspect]
     Active Substance: SECUKINUMAB
     Dosage: 150 MG, QMO
     Route: 058

REACTIONS (10)
  - Dystonia [Recovered/Resolved]
  - Dystonia [Unknown]
  - Feeling abnormal [Unknown]
  - Malaise [Unknown]
  - Anxiety [Unknown]
  - Bone pain [Unknown]
  - Neck pain [Unknown]
  - Stress [Unknown]
  - Euphoric mood [Unknown]
  - Cystitis [Unknown]

NARRATIVE: CASE EVENT DATE: 20221201
